FAERS Safety Report 21307280 (Version 1)
Quarter: 2022Q3

REPORT INFORMATION
  Report Type: Spontaneous
  Country: NO (occurrence: NO)
  Receive Date: 20220908
  Receipt Date: 20220908
  Transmission Date: 20221026
  Serious: Yes (Life-Threatening, Hospitalization, Other)
  Sender: FDA-Public Use
  Company Number: NO-CURRAX PHARMACEUTICALS LLC-NO-2022CUR022808

PATIENT
  Age: 51 Year
  Sex: Male
  Weight: 130 kg

DRUGS (3)
  1. BUPROPION HYDROCHLORIDE\NALTREXONE HYDROCHLORIDE [Suspect]
     Active Substance: BUPROPION HYDROCHLORIDE\NALTREXONE HYDROCHLORIDE
     Indication: Obesity
     Dosage: 2X2
     Route: 065
     Dates: start: 202207, end: 20220823
  2. BREXIDOL [PIROXICAM] [Concomitant]
     Indication: Inflammation
     Dosage: 1 DF, 1 DAY
  3. EXFORGE HCT [Concomitant]
     Active Substance: AMLODIPINE BESYLATE\HYDROCHLOROTHIAZIDE\VALSARTAN
     Indication: Hypertension
     Dosage: 1 DF, 1 DAY

REACTIONS (5)
  - Atrial fibrillation [Recovering/Resolving]
  - Electroconvulsive therapy [Unknown]
  - Heart rate increased [Unknown]
  - Palpitations [Unknown]
  - Dizziness [Unknown]

NARRATIVE: CASE EVENT DATE: 20220822
